FAERS Safety Report 8094146-7 (Version None)
Quarter: 2012Q1

REPORT INFORMATION
  Report Type: 
  Country: None (occurrence: None)
  Receive Date: 20120130
  Receipt Date: 20120130
  Transmission Date: 20120608
  Serious: No
  Sender: FDA-Public Use
  Company Number: None

PATIENT
  Age: 57 Year
  Sex: Male
  Weight: 110 kg

DRUGS (1)
  1. METHOTREXATE [Suspect]
     Indication: ECZEMA
     Dosage: 17.5MG
     Route: 048

REACTIONS (4)
  - PNEUMONIA [None]
  - TRAUMATIC LUNG INJURY [None]
  - PNEUMONITIS [None]
  - MENTAL STATUS CHANGES [None]
